FAERS Safety Report 20515683 (Version 2)
Quarter: 2022Q1

REPORT INFORMATION
  Report Type: Spontaneous
  Country: US (occurrence: US)
  Receive Date: 20220224
  Receipt Date: 20220316
  Transmission Date: 20220423
  Serious: Yes (Other)
  Sender: FDA-Public Use
  Company Number: US-JNJFOC-20220234669

PATIENT
  Sex: Male
  Weight: 63.560 kg

DRUGS (12)
  1. INVEGA TRINZA [Suspect]
     Active Substance: PALIPERIDONE PALMITATE
     Indication: Schizoaffective disorder
     Route: 030
  2. INVEGA TRINZA [Suspect]
     Active Substance: PALIPERIDONE PALMITATE
     Indication: Affective disorder
  3. INVEGA TRINZA [Suspect]
     Active Substance: PALIPERIDONE PALMITATE
  4. HALOPERIDOL [Suspect]
     Active Substance: HALOPERIDOL
     Indication: Psychotic disorder
     Route: 065
  5. OLANZAPINE [Suspect]
     Active Substance: OLANZAPINE
     Indication: Psychotic disorder
     Route: 065
  6. OLANZAPINE [Suspect]
     Active Substance: OLANZAPINE
     Route: 065
  7. CLONAZEPAM [Concomitant]
     Active Substance: CLONAZEPAM
     Indication: Product used for unknown indication
  8. CLONIDINE [Concomitant]
     Active Substance: CLONIDINE
  9. CALCIUM MEFOLINATE [Concomitant]
     Active Substance: CALCIUM MEFOLINATE
  10. LEVOTHYROXINE [Concomitant]
     Active Substance: LEVOTHYROXINE
     Indication: Product used for unknown indication
  11. TOPIRAMATE [Concomitant]
     Active Substance: TOPIRAMATE
     Indication: Electroencephalogram abnormal
     Route: 048
  12. FLUVOXAMINE [Concomitant]
     Active Substance: FLUVOXAMINE

REACTIONS (3)
  - Schizoaffective disorder [Unknown]
  - Off label use [Unknown]
  - Inappropriate schedule of product administration [Unknown]
